FAERS Safety Report 5133203-1 (Version None)
Quarter: 2006Q4

REPORT INFORMATION
  Report Type: 
  Country: None (occurrence: None)
  Receive Date: 20061023
  Receipt Date: 20061013
  Transmission Date: 20070319
  Serious: Yes (Other)
  Sender: FDA-Public Use
  Company Number: SE-MERCK-0610USA11463

PATIENT
  Age: 83 Year
  Sex: Female

DRUGS (1)
  1. HYZAAR [Suspect]
     Route: 048

REACTIONS (3)
  - HYPERTENSION [None]
  - MEDICATION ERROR [None]
  - WRONG DRUG ADMINISTERED [None]
